FAERS Safety Report 6769790-7 (Version None)
Quarter: 2010Q2

REPORT INFORMATION
  Report Type: 
  Country: None (occurrence: None)
  Receive Date: 20100615
  Receipt Date: 20100609
  Transmission Date: 20101027
  Serious: Yes (Hospitalization, Disabling)
  Sender: FDA-Public Use
  Company Number: GB-EISAI INC.-E2080-00287-SPO-GB

PATIENT
  Age: 14 Year
  Sex: Female
  Weight: 40 kg

DRUGS (3)
  1. INOVELON [Suspect]
     Route: 048
     Dates: start: 20091201
  2. TOPIRAMATE [Concomitant]
     Dosage: 275 MG DAILY
  3. CLOBAZAM [Concomitant]
     Dosage: 10/MG/5MG/10MG

REACTIONS (1)
  - PANCREATITIS [None]
